FAERS Safety Report 7407287-1 (Version None)
Quarter: 2011Q2

REPORT INFORMATION
  Report Type: 
  Country: None (occurrence: None)
  Receive Date: 20110411
  Receipt Date: 20110331
  Transmission Date: 20111010
  Serious: Yes (Hospitalization)
  Sender: FDA-Public Use
  Company Number: PHFR2011GB01166

PATIENT
  Sex: Female

DRUGS (5)
  1. MADOPAR [Concomitant]
     Indication: PARKINSON'S DISEASE
     Dosage: 375 MG, QD
  2. SINEMET CR [Concomitant]
     Indication: PARKINSON'S DISEASE
     Dosage: 375 MG, QD
  3. RIVASTIGMINE [Suspect]
     Indication: DEMENTIA
     Dosage: 6 MG, BID
  4. RIVASTIGMINE [Suspect]
     Dosage: 6 MG,OD
  5. CITALOPRAM [Concomitant]
     Indication: DEPRESSION
     Dosage: 40 MG, QD

REACTIONS (6)
  - SUBDURAL HAEMATOMA [None]
  - FALL [None]
  - HEAD INJURY [None]
  - POST-TRAUMATIC EPILEPSY [None]
  - URINARY TRACT INFECTION [None]
  - DYSKINESIA [None]
